FAERS Safety Report 13431968 (Version 2)
Quarter: 2017Q2

REPORT INFORMATION
  Report Type: Spontaneous
  Country: GB (occurrence: GB)
  Receive Date: 20170412
  Receipt Date: 20170512
  Transmission Date: 20170830
  Serious: Yes (Death)
  Sender: FDA-Public Use
  Company Number: GB-INCYTE CORPORATION-2017IN002615

PATIENT

DRUGS (1)
  1. JAKAVI [Suspect]
     Active Substance: RUXOLITINIB
     Indication: PRODUCT USED FOR UNKNOWN INDICATION
     Dosage: UNK
     Route: 065

REACTIONS (2)
  - Therapeutic response decreased [Fatal]
  - Anaemia [Unknown]
